FAERS Safety Report 18209254 (Version 1)
Quarter: 2020Q3

REPORT INFORMATION
  Report Type: Spontaneous
  Country: JP (occurrence: JP)
  Receive Date: 20200828
  Receipt Date: 20200828
  Transmission Date: 20201103
  Serious: Yes (Other)
  Sender: FDA-Public Use
  Company Number: JP-ASTRAZENECA-2020SF08443

PATIENT
  Age: 62 Year
  Sex: Female

DRUGS (1)
  1. LYNPARZA [Suspect]
     Active Substance: OLAPARIB
     Indication: OVARIAN CANCER
     Dosage: FOUR DOSAGE FORM, NUMBER OF SEPARATE DOSAGES UNKNOWN
     Route: 048
     Dates: start: 20190215, end: 20200620

REACTIONS (1)
  - Ovarian cancer recurrent [Unknown]
